FAERS Safety Report 15012866 (Version 1)
Quarter: 2018Q2

REPORT INFORMATION
  Report Type: Report from Study
  Country: ES (occurrence: ES)
  Receive Date: 20180614
  Receipt Date: 20180614
  Transmission Date: 20180711
  Serious: Yes (Hospitalization, Other)
  Sender: FDA-Public Use
  Company Number: PHHY2018ES016035

PATIENT
  Age: 4 Year
  Sex: Male
  Weight: 32 kg

DRUGS (4)
  1. DABRAFENIB [Suspect]
     Active Substance: DABRAFENIB
     Dosage: 50 UG, Q12H
     Route: 048
     Dates: start: 20180503
  2. CHLOROQUINE. [Concomitant]
     Active Substance: CHLOROQUINE
     Indication: PHAGOCYTOSIS
     Dosage: 75 MG, QD
     Route: 065
     Dates: start: 20150130, end: 20180501
  3. DABRAFENIB [Suspect]
     Active Substance: DABRAFENIB
     Indication: GANGLIOGLIOMA
     Dosage: 50 MG, Q12H
     Route: 048
     Dates: start: 20140710, end: 20180501
  4. CHLOROQUINE. [Concomitant]
     Active Substance: CHLOROQUINE
     Dosage: 75 MG, QD
     Route: 065

REACTIONS (3)
  - Ganglioglioma [Unknown]
  - Malignant neoplasm progression [Unknown]
  - Pneumonia [Unknown]

NARRATIVE: CASE EVENT DATE: 201501
